FAERS Safety Report 12066939 (Version 1)
Quarter: 2016Q1

REPORT INFORMATION
  Report Type: Spontaneous
  Country: KR (occurrence: KR)
  Receive Date: 20160210
  Receipt Date: 20160210
  Transmission Date: 20160526
  Serious: Yes (Hospitalization)
  Sender: FDA-Public Use
  Company Number: KR-AMGEN-KORCT2016015593

PATIENT
  Age: 42 Year
  Sex: Female
  Weight: 69 kg

DRUGS (19)
  1. DOCETAXEL. [Concomitant]
     Active Substance: DOCETAXEL
     Dosage: 134 MG, UNK
     Route: 042
     Dates: start: 20151205, end: 20151205
  2. DOXORUBICIN [Concomitant]
     Active Substance: DOXORUBICIN
     Dosage: 89 MG, UNK
     Route: 042
     Dates: start: 20160121, end: 20160121
  3. FILGRASTIM [Concomitant]
     Active Substance: FILGRASTIM
     Dosage: 150 MUG, UNK
     Route: 058
     Dates: start: 20151211, end: 20151212
  4. G-LASTA [Suspect]
     Active Substance: PEGFILGRASTIM
     Dosage: 6MG, Q3WK
     Route: 058
     Dates: start: 20151230
  5. DOCETAXEL. [Concomitant]
     Active Substance: DOCETAXEL
     Dosage: 134 MG, UNK
     Route: 042
     Dates: start: 20151229, end: 20151229
  6. DOXORUBICIN [Concomitant]
     Active Substance: DOXORUBICIN
     Dosage: 89 MG, UNK
     Route: 042
     Dates: start: 20151205, end: 20151205
  7. CYCLOPHOSPHAMIDE. [Concomitant]
     Active Substance: CYCLOPHOSPHAMIDE
     Dosage: 895 MG, UNK
     Route: 042
     Dates: start: 20151205, end: 20151205
  8. CYCLOPHOSPHAMIDE. [Concomitant]
     Active Substance: CYCLOPHOSPHAMIDE
     Dosage: 895 MG, UNK
     Route: 042
     Dates: start: 20160121, end: 20160121
  9. DOCETAXEL. [Concomitant]
     Active Substance: DOCETAXEL
     Dosage: UNK
  10. DOXORUBICIN [Concomitant]
     Active Substance: DOXORUBICIN
     Dosage: 89 MG, UNK
     Route: 042
     Dates: start: 20151229, end: 20151229
  11. CYCLOPHOSPHAMIDE. [Concomitant]
     Active Substance: CYCLOPHOSPHAMIDE
     Dosage: 895 MG, UNK
     Route: 042
     Dates: start: 20151229, end: 20151229
  12. CEFOBACTAM [Concomitant]
     Active Substance: CEFOPERAZONE SODIUM\SULBACTAM SODIUM
     Dosage: 2 G, UNK
     Route: 042
     Dates: start: 20160105, end: 20160105
  13. TOBRAMYCIN. [Concomitant]
     Active Substance: TOBRAMYCIN
     Dosage: 200 MG, UNK
     Route: 042
     Dates: start: 20160105, end: 20160105
  14. G-LASTA [Suspect]
     Active Substance: PEGFILGRASTIM
     Dosage: 6MG, Q3WK
     Route: 058
     Dates: start: 20160122
  15. FILGRASTIM [Concomitant]
     Active Substance: FILGRASTIM
     Dosage: 150 MUG, UNK
     Route: 058
     Dates: start: 20160105, end: 20160105
  16. TOBRAMYCIN. [Concomitant]
     Active Substance: TOBRAMYCIN
     Dosage: 200 MG, UNK
     Route: 042
     Dates: start: 20151211, end: 20151212
  17. G-LASTA [Suspect]
     Active Substance: PEGFILGRASTIM
     Indication: FEBRILE NEUTROPENIA
     Dosage: 6MG, Q3WK
     Route: 058
     Dates: start: 20151206
  18. DOCETAXEL. [Concomitant]
     Active Substance: DOCETAXEL
     Dosage: 134 MG, UNK
     Route: 042
     Dates: start: 20160121, end: 20160121
  19. CEFOBACTAM [Concomitant]
     Active Substance: CEFOPERAZONE SODIUM\SULBACTAM SODIUM
     Dosage: 2 G, UNK
     Route: 042
     Dates: start: 20151211, end: 20151212

REACTIONS (1)
  - Neutropenia [Recovered/Resolved]

NARRATIVE: CASE EVENT DATE: 20160128
